FAERS Safety Report 23401445 (Version 2)
Quarter: 2024Q1

REPORT INFORMATION
  Report Type: Spontaneous
  Country: CN (occurrence: CN)
  Receive Date: 20240115
  Receipt Date: 20240119
  Transmission Date: 20240410
  Serious: Yes (Other)
  Sender: FDA-Public Use
  Company Number: CN-MLMSERVICE-20240103-4759696-1

PATIENT
  Age: 37 Year
  Sex: Female
  Weight: 48 kg

DRUGS (3)
  1. OXALIPLATIN [Suspect]
     Active Substance: OXALIPLATIN
     Indication: Cholangiocarcinoma
     Dosage: ONCE EVERY FOUR WEEKS DRUG_DOSAGE_NUMBER : 255 DRUG_DOSAGE_UNIT : MG/M2 DRUG_INTERVAL_DOSAGE_UNIT_NU
  2. DURVALUMAB [Suspect]
     Active Substance: DURVALUMAB
     Indication: Cholangiocarcinoma
     Dosage: ONCE EVERY THREE WEEKS DRUG_DOSAGE_NUMBER : 4500 DRUG_DOSAGE_UNIT : MG DRUG_INTERVAL_DOSAGE_UNIT_NUM
     Route: 042
  3. GEMCITABINE HYDROCHLORIDE [Suspect]
     Active Substance: GEMCITABINE HYDROCHLORIDE
     Indication: Cholangiocarcinoma
     Dosage: ONCE EVERY FOUR WEEKS DRUG_DOSAGE_NUMBER : 3000 DRUG_DOSAGE_UNIT : MG/M2 DRUG_INTERVAL_DOSAGE_UNIT_N

REACTIONS (12)
  - Conjunctival haemorrhage [Unknown]
  - Myelosuppression [Unknown]
  - Hepatic failure [Unknown]
  - Ecchymosis [Unknown]
  - Thrombocytopenia [Unknown]
  - Nausea [Unknown]
  - Vomiting [Unknown]
  - Decreased appetite [Unknown]
  - Hypoproteinaemia [Unknown]
  - Pain [Unknown]
  - Fatigue [Unknown]
  - Discomfort [Unknown]
